FAERS Safety Report 11755111 (Version 2)
Quarter: 2015Q4

REPORT INFORMATION
  Report Type: Spontaneous
  Country: JP (occurrence: JP)
  Receive Date: 20151119
  Receipt Date: 20151201
  Transmission Date: 20160304
  Serious: Yes (Death, Other)
  Sender: FDA-Public Use
  Company Number: JP-BRISTOL-MYERS SQUIBB COMPANY-BMS-2015-077139

PATIENT
  Age: 62 Year
  Sex: Female

DRUGS (1)
  1. KENACORT-A [Suspect]
     Active Substance: TRIAMCINOLONE
     Indication: MALIGNANT ASCITES
     Dosage: 10 MG/KG, UNK
     Route: 033

REACTIONS (2)
  - Off label use [Unknown]
  - Intestinal perforation [Fatal]
